FAERS Safety Report 10525083 (Version 2)
Quarter: 2014Q4

REPORT INFORMATION
  Report Type: Spontaneous
  Country: CA (occurrence: None)
  Receive Date: 20141015
  Receipt Date: 20141027
  Transmission Date: 20150528
  Serious: No
  Sender: FDA-Public Use
  Company Number: CA-017315

PATIENT
  Age: 79 Year
  Sex: Male

DRUGS (5)
  1. METOPROLOL (METOPROLOL) [Suspect]
     Active Substance: METOPROLOL
     Indication: CARDIAC DISORDER
  2. MAVIK [Concomitant]
     Active Substance: TRANDOLAPRIL
  3. FIRMAGON [Suspect]
     Active Substance: DEGARELIX ACETATE
     Indication: PROSTATE CANCER
     Route: 058
     Dates: start: 20141003
  4. ATORVASTATIN [Concomitant]
     Active Substance: ATORVASTATIN
  5. METOPROLOL (METOPROLOL) [Suspect]
     Active Substance: METOPROLOL
     Indication: CARDIAC DISORDER

REACTIONS (8)
  - Fall [None]
  - Loss of consciousness [None]
  - Injection site pain [None]
  - Hyperhidrosis [None]
  - Paraesthesia [None]
  - Injection site mass [None]
  - Injection site swelling [None]
  - Injection site erythema [None]

NARRATIVE: CASE EVENT DATE: 20141005
